FAERS Safety Report 4512629-0 (Version None)
Quarter: 2004Q4

REPORT INFORMATION
  Report Type: 
  Country: None (occurrence: None)
  Receive Date: 20041129
  Receipt Date: 20041119
  Transmission Date: 20050328
  Serious: Yes (Life-Threatening, Hospitalization, Disabling)
  Sender: FDA-Public Use
  Company Number: US-MERCK-0411USA03400

PATIENT
  Age: 50 Year
  Sex: Female

DRUGS (9)
  1. VIOXX [Suspect]
     Indication: BONE DISORDER
     Route: 048
     Dates: start: 20010201, end: 20011201
  2. VIOXX [Suspect]
     Indication: PAIN MANAGEMENT
     Route: 048
     Dates: start: 20010201, end: 20011201
  3. [THERAPY UNSPECIFIED] [Concomitant]
     Route: 065
  4. FLEXERIL [Concomitant]
     Route: 065
  5. ZANAFLEX [Concomitant]
     Route: 065
  6. VICODIN [Concomitant]
     Route: 065
  7. VICOPROFEN [Concomitant]
     Route: 065
  8. ATENOLOL [Concomitant]
     Route: 065
  9. CELEXA [Concomitant]
     Route: 065

REACTIONS (12)
  - ANXIETY [None]
  - BONE DISORDER [None]
  - EPISTAXIS [None]
  - FAECES DISCOLOURED [None]
  - FAECES PALE [None]
  - HYPERTENSION [None]
  - LIVER DISORDER [None]
  - MENORRHAGIA [None]
  - MUSCLE CRAMP [None]
  - NERVE DEGENERATION [None]
  - PLATELET COUNT DECREASED [None]
  - PLATELET DISORDER [None]
